FAERS Safety Report 17924537 (Version 1)
Quarter: 2020Q2

REPORT INFORMATION
  Report Type: Other
  Country: US (occurrence: US)
  Receive Date: 20200622
  Receipt Date: 20200622
  Transmission Date: 20200714
  Serious: No
  Sender: FDA-Public Use
  Company Number: US-ACORDA-ACO_164462_2020

PATIENT
  Age: 64 Year
  Sex: Male

DRUGS (1)
  1. INBRIJA [Suspect]
     Active Substance: LEVODOPA
     Indication: PARKINSON^S DISEASE
     Dosage: 84 MILLIGRAM, PRN UP TO 5 TIMES DAILY
     Dates: start: 20190722

REACTIONS (2)
  - Abdominal pain [Unknown]
  - Dysphagia [Unknown]

NARRATIVE: CASE EVENT DATE: 20200116
